FAERS Safety Report 5015359-4 (Version None)
Quarter: 2006Q2

REPORT INFORMATION
  Report Type: 
  Country: None (occurrence: None)
  Receive Date: 20060601
  Receipt Date: 20060522
  Transmission Date: 20061013
  Serious: Yes (Hospitalization)
  Sender: FDA-Public Use
  Company Number: FR-JNJFOC-20060505053

PATIENT
  Age: 81 Year
  Sex: Female

DRUGS (5)
  1. DURAGESIC-100 [Suspect]
     Route: 062
  2. DURAGESIC-100 [Suspect]
     Indication: CANCER PAIN
     Route: 062
  3. DI-ANTALVIC [Suspect]
     Route: 065
  4. DI-ANTALVIC [Suspect]
     Indication: DRUG USE FOR UNKNOWN INDICATION
     Route: 065
  5. VOGALENE [Concomitant]
     Route: 065

REACTIONS (8)
  - DEHYDRATION [None]
  - DRUG TOXICITY [None]
  - FALL [None]
  - LABORATORY TEST ABNORMAL [None]
  - ORAL FUNGAL INFECTION [None]
  - OVERDOSE [None]
  - POLLAKIURIA [None]
  - SOMNOLENCE [None]
